FAERS Safety Report 8611987 (Version 4)
Quarter: 2013Q3

REPORT INFORMATION
  Report Type: Report from Study
  Country: CA (occurrence: CA)
  Receive Date: 20120613
  Receipt Date: 20130906
  Transmission Date: 20140515
  Serious: Yes (Other)
  Sender: FDA-Public Use
  Company Number: PHHY2012CA050002

PATIENT
  Age: 61 Year
  Sex: Female
  Weight: 72.11 kg

DRUGS (8)
  1. ACLASTA [Suspect]
     Indication: OSTEOPOROSIS POSTMENOPAUSAL
     Dosage: UNK UKN, UNK
     Route: 042
     Dates: start: 20110803
  2. ACLASTA [Suspect]
     Dosage: UNK UKN, UNK
     Route: 042
     Dates: start: 20120730
  3. PROGRAF [Concomitant]
     Dosage: UNK UKN, UNK
  4. MYFORTIC [Concomitant]
     Dosage: UNK UKN, UNK
  5. LOSEC [Concomitant]
     Dosage: UNK UKN, UNK
  6. URSOL [Concomitant]
     Dosage: UNK UKN, UNK
  7. SYNTHROID [Concomitant]
     Dosage: UNK UKN, UNK
  8. CALCIUM WITH VITAMIN D [Concomitant]
     Dosage: UNK UKN, UNK

REACTIONS (8)
  - Urine output increased [Unknown]
  - Renal impairment [Unknown]
  - Creatinine renal clearance decreased [Unknown]
  - Glomerular filtration rate decreased [Unknown]
  - White blood cell count decreased [Unknown]
  - Platelet count decreased [Unknown]
  - Neutrophil count decreased [Unknown]
  - Lymphocyte count decreased [Unknown]
